FAERS Safety Report 9914321 (Version 1)
Quarter: 2014Q1

REPORT INFORMATION
  Report Type: Spontaneous
  Country: US (occurrence: None)
  Receive Date: 20140219
  Receipt Date: 20140219
  Transmission Date: 20141002
  Serious: No
  Sender: FDA-Public Use
  Company Number: None

PATIENT
  Age: 62 Year
  Sex: Male
  Weight: 113.4 kg

DRUGS (1)
  1. NOSTRILLA [Suspect]
     Indication: NASAL CONGESTION
     Dosage: 2 PUFFS
     Route: 055
     Dates: start: 20140215

REACTIONS (3)
  - Pain [None]
  - Headache [None]
  - Product quality issue [None]
